FAERS Safety Report 13060408 (Version 3)
Quarter: 2017Q1

REPORT INFORMATION
  Report Type: Spontaneous
  Country: US (occurrence: US)
  Receive Date: 20161224
  Receipt Date: 20170209
  Transmission Date: 20170428
  Serious: Yes (Other)
  Sender: FDA-Public Use
  Company Number: US-009507513-1612USA010944

PATIENT
  Sex: Female
  Weight: 44.8 kg

DRUGS (18)
  1. LEVOTHYROXINE SODIUM. [Concomitant]
     Active Substance: LEVOTHYROXINE SODIUM
     Dosage: 88 MICROGRAM, QD
     Dates: start: 20151217
  2. IRON (UNSPECIFIED) [Concomitant]
     Active Substance: IRON
  3. NIFEDIPINE. [Concomitant]
     Active Substance: NIFEDIPINE
     Dosage: UNK
     Dates: start: 20140518
  4. VALACYCLOVIR HYDROCHLORIDE. [Concomitant]
     Active Substance: VALACYCLOVIR HYDROCHLORIDE
     Dosage: UNK
     Route: 048
     Dates: start: 20151207
  5. GABAPENTIN. [Concomitant]
     Active Substance: GABAPENTIN
     Dosage: 600 MG, TID
     Route: 048
  6. ACYCLOVIR. [Concomitant]
     Active Substance: ACYCLOVIR
     Dosage: 2 DF, QD
  7. ASPIRIN. [Concomitant]
     Active Substance: ASPIRIN
     Dosage: UNK
     Route: 048
  8. VITAMIN D [Concomitant]
     Active Substance: CHOLECALCIFEROL
  9. ACETAMINOPHEN (+) HYDROCODONE BITARTRATE [Concomitant]
     Active Substance: ACETAMINOPHEN\HYDROCODONE BITARTRATE
     Indication: PAIN
     Dosage: STRENGTH: 10-325 MG; 1 TO 2 TABLETS EVERY 6 HOURS AS NEEDED
     Route: 048
     Dates: start: 20150107
  10. OXYCONTIN [Concomitant]
     Active Substance: OXYCODONE HYDROCHLORIDE
     Dosage: 20 MG, BID-TID
  11. METHOCARBAMOL. [Concomitant]
     Active Substance: METHOCARBAMOL
     Dosage: UNK
     Route: 048
     Dates: start: 20150101
  12. NYSTATIN. [Concomitant]
     Active Substance: NYSTATIN
     Dosage: MOUTH/THROAT SUSPENSION, SWISH AND SWALLOW 10 ML UP TO 5 TIMES DAILY
     Dates: start: 20150730
  13. ACETAMINOPHEN (+) OXYCODONE HYDROCHLORIDE [Concomitant]
     Active Substance: ACETAMINOPHEN\OXYCODONE HYDROCHLORIDE
     Indication: PAIN
     Dosage: 10-325 MG ORAL TABLET, TAKE 1 TO 2 TABLETS EVERY 4 TO 6 HOURS AS NEEDED
     Dates: start: 20160414
  14. PRILOSEC [Concomitant]
     Active Substance: OMEPRAZOLE MAGNESIUM
     Dosage: TAKE A CAPSULE TWICE DAILY
     Route: 048
     Dates: start: 20140714
  15. FOSAMAX [Suspect]
     Active Substance: ALENDRONATE SODIUM
     Indication: BONE LOSS
     Dosage: UNK
     Route: 048
     Dates: start: 20150820, end: 20160714
  16. CLONIDINE HYDROCHLORIDE. [Concomitant]
     Active Substance: CLONIDINE HYDROCHLORIDE
     Dosage: UNK
     Dates: start: 20160127
  17. COZAAR [Concomitant]
     Active Substance: LOSARTAN POTASSIUM
     Dosage: 50 MG, QD
     Dates: start: 20150901
  18. CARVEDILOL. [Concomitant]
     Active Substance: CARVEDILOL
     Dosage: UNK
     Dates: start: 20141007

REACTIONS (15)
  - Hyponatraemia [Unknown]
  - Post procedural hypothyroidism [Unknown]
  - Large intestine polyp [Unknown]
  - Hypocalcaemia [Unknown]
  - Weight decreased [Unknown]
  - Osteopenia [Unknown]
  - Papillary thyroid cancer [Unknown]
  - Sternal fracture [Unknown]
  - Hypertensive crisis [Unknown]
  - Malabsorption [Unknown]
  - Anaemia macrocytic [Unknown]
  - Endocrine test abnormal [Unknown]
  - Failure to thrive [Unknown]
  - Thyroid mass [Unknown]
  - Fracture [Unknown]
